FAERS Safety Report 20473167 (Version 1)
Quarter: 2022Q1

REPORT INFORMATION
  Report Type: Spontaneous
  Country: US (occurrence: None)
  Receive Date: 20220215
  Receipt Date: 20220215
  Transmission Date: 20220424
  Serious: Yes (Hospitalization)
  Sender: FDA-Public Use
  Company Number: 2022A062727

PATIENT
  Age: 58 Year
  Sex: Female
  Weight: 69.6 kg

DRUGS (2)
  1. EVUSHELD [Suspect]
     Active Substance: CILGAVIMAB\TIXAGEVIMAB
     Indication: COVID-19 immunisation
     Dosage: TIXAGEVIMAB 150 MG AND CILGAVIMAB 150 MG, ONCE/SINGLE ADMINISTRATION
     Route: 030
     Dates: start: 20220114
  2. COVID VACCINE [Concomitant]
     Route: 065

REACTIONS (5)
  - Chills [Unknown]
  - Productive cough [Unknown]
  - Fatigue [Unknown]
  - Diarrhoea [Unknown]
  - COVID-19 [Not Recovered/Not Resolved]

NARRATIVE: CASE EVENT DATE: 20220101
